FAERS Safety Report 5241375-3 (Version None)
Quarter: 2007Q1

REPORT INFORMATION
  Report Type: 
  Country: None (occurrence: None)
  Receive Date: 20070212
  Receipt Date: 20070212
  Transmission Date: 20070707
  Serious: Yes (Life-Threatening)
  Sender: FDA-Public Use
  Company Number: None

PATIENT
  Age: 54 Year
  Sex: Male

DRUGS (1)
  1. CISPLATIN [Suspect]
     Indication: TONGUE CARCINOMA STAGE III
     Dosage: 100 MG/M2=183 MG FIRST CYCLE IV
     Route: 042
     Dates: start: 20061016

REACTIONS (1)
  - RENAL FAILURE ACUTE [None]
